FAERS Safety Report 10153413 (Version 1)
Quarter: 2014Q2

REPORT INFORMATION
  Report Type: Spontaneous
  Country: US (occurrence: US)
  Receive Date: 20140505
  Receipt Date: 20140505
  Transmission Date: 20141212
  Serious: No
  Sender: FDA-Public Use
  Company Number: US-ASTRAZENECA-2013SE90054

PATIENT
  Sex: Male

DRUGS (3)
  1. PRILOSEC [Suspect]
     Route: 048
  2. CARBIDOPA [Interacting]
     Route: 065
  3. LEVODOPA [Interacting]
     Route: 065

REACTIONS (4)
  - Drug interaction [Unknown]
  - Feeling cold [Unknown]
  - Tremor [Unknown]
  - Drug ineffective [Unknown]
